FAERS Safety Report 7400341-X (Version None)
Quarter: 2011Q2

REPORT INFORMATION
  Report Type: 
  Country: None (occurrence: None)
  Receive Date: 20110407
  Receipt Date: 20110331
  Transmission Date: 20111010
  Serious: Yes (Hospitalization, Disabling, Other)
  Sender: FDA-Public Use
  Company Number: DE-BRISTOL-MYERS SQUIBB COMPANY-15508930

PATIENT
  Age: 78 Year
  Sex: Female
  Weight: 60 kg

DRUGS (3)
  1. CORZIDE TABS [Suspect]
  2. MITOMYCIN [Suspect]
     Dosage: 20MG:25MAY TO ONG;1JUN10 TO ONG; 08JUN TO ONG;15JUN TO ONG;22JUN TO UNK
     Route: 043
     Dates: start: 20100525
  3. CORGARD [Suspect]
     Dosage: CORZIDE TABS 40/5MG,80/5MG

REACTIONS (3)
  - KERATITIS [None]
  - HERPES ZOSTER [None]
  - RASH [None]
